FAERS Safety Report 25956860 (Version 1)
Quarter: 2025Q4

REPORT INFORMATION
  Report Type: Spontaneous
  Country: US (occurrence: None)
  Receive Date: 20251023
  Receipt Date: 20251023
  Transmission Date: 20260118
  Serious: Yes (Other)
  Sender: FDA-CTU
  Company Number: None

PATIENT
  Age: 51 Year
  Sex: Female
  Weight: 60.75 kg

DRUGS (21)
  1. CETIRIZINE [Suspect]
     Active Substance: CETIRIZINE HYDROCHLORIDE
     Indication: Antiallergic therapy
  2. RIZATRIPTAN [Concomitant]
     Active Substance: RIZATRIPTAN
  3. Zyrtec 10 [Concomitant]
  4. VITAMIN D3 [Concomitant]
     Active Substance: CHOLECALCIFEROL
  5. JWH-018 [Concomitant]
     Active Substance: JWH-018
  6. FISH OIL [Concomitant]
     Active Substance: FISH OIL
  7. C [Concomitant]
  8. multi [Concomitant]
  9. VITAMIN B COMPLEX [Concomitant]
     Active Substance: CYANOCOBALAMIN\DEXPANTHENOL\NIACINAMIDE\PYRIDOXINE HYDROCHLORIDE\RIBOFLAVIN 5^-PHOSPHATE SODIUM\THIA
  10. NMN [Concomitant]
     Active Substance: NICOTINAMIDE RIBOTIDE\RESVERATROL
  11. DIETARY SUPPLEMENT\RESVERATROL [Concomitant]
     Active Substance: DIETARY SUPPLEMENT\RESVERATROL
  12. ALA [Concomitant]
  13. TMG [Concomitant]
  14. GLUTAMINE [Concomitant]
     Active Substance: GLUTAMINE
  15. GLUTATHIONE [Concomitant]
     Active Substance: GLUTATHIONE
  16. DIETARY SUPPLEMENT\HERBALS\MILK THISTLE [Concomitant]
     Active Substance: MILK THISTLE
  17. GLYCINE [Concomitant]
     Active Substance: GLYCINE
  18. LYSINE [Concomitant]
     Active Substance: LYSINE
  19. perfect aminos [Concomitant]
  20. ELECTROLYTES NOS [Concomitant]
     Active Substance: ELECTROLYTES NOS
  21. MAGNESIUM [Concomitant]
     Active Substance: MAGNESIUM

REACTIONS (4)
  - Alopecia [None]
  - Eczema eyelids [None]
  - Pruritus [None]
  - Withdrawal syndrome [None]

NARRATIVE: CASE EVENT DATE: 20250721
